FAERS Safety Report 8785362 (Version 2)
Quarter: 2012Q4

REPORT INFORMATION
  Report Type: Spontaneous
  Country: None (occurrence: None)
  Receive Date: 20120904
  Receipt Date: 20120910
  Transmission Date: 20130627
  Serious: Yes (Disabling)
  Sender: FDA-Public Use
  Company Number: AUR-APL-2012-03618

PATIENT
  Age: 77 Year
  Sex: Female
  Weight: 86 kg

DRUGS (1)
  1. MIRTAZAPINE [Suspect]
     Indication: DEPRESSION
     Dates: end: 20120620

REACTIONS (2)
  - Tardive dyskinesia [None]
  - Dysphagia [None]
